FAERS Safety Report 7226102-2 (Version None)
Quarter: 2011Q1

REPORT INFORMATION
  Report Type: 
  Country: None (occurrence: None)
  Receive Date: 20110113
  Receipt Date: 20100106
  Transmission Date: 20110831
  Serious: Yes (Hospitalization, Disabling)
  Sender: FDA-Public Use
  Company Number: US-US-EMD SERONO, INC.-236533K09USA

PATIENT
  Sex: Female
  Weight: 61 kg

DRUGS (11)
  1. DIOVAN [Concomitant]
     Indication: HYPERTENSION
     Route: 065
  2. IRON SUPPLEMENT [Concomitant]
     Indication: ANAEMIA
     Route: 065
  3. CRESTOR [Concomitant]
     Indication: BLOOD CHOLESTEROL INCREASED
     Route: 065
  4. ATENOLOL [Concomitant]
     Indication: HYPERTENSION
     Route: 065
  5. SYNTHROID [Concomitant]
     Indication: HYPOTHYROIDISM
     Route: 065
  6. PROVIGIL [Concomitant]
     Indication: DEPRESSED LEVEL OF CONSCIOUSNESS
     Route: 065
  7. DEPO-PROVERA [Suspect]
     Route: 065
     Dates: start: 19980101, end: 20080901
  8. REBIF [Suspect]
     Indication: MULTIPLE SCLEROSIS
     Route: 058
     Dates: start: 20040705
  9. NEURONTIN [Concomitant]
     Indication: NYSTAGMUS
     Route: 065
  10. ZOLOFT [Concomitant]
     Indication: DEPRESSION
     Route: 065
     Dates: start: 20000101
  11. INSULIN [Concomitant]
     Indication: DIABETES MELLITUS
     Route: 065
     Dates: start: 19790101

REACTIONS (4)
  - MENINGIOMA BENIGN [None]
  - POST PROCEDURAL INFECTION [None]
  - APHASIA [None]
  - NAUSEA [None]
